FAERS Safety Report 22151238 (Version 1)
Quarter: 2023Q1

REPORT INFORMATION
  Report Type: Spontaneous
  Country: JP (occurrence: JP)
  Receive Date: 20230329
  Receipt Date: 20230329
  Transmission Date: 20230417
  Serious: Yes (Hospitalization, Other)
  Sender: FDA-Public Use
  Company Number: JP-UCBJ-CD202302981UCBPHAPROD

PATIENT
  Age: 1 Year
  Sex: Female

DRUGS (16)
  1. LEVETIRACETAM [Suspect]
     Active Substance: LEVETIRACETAM
     Indication: Seizure
     Dosage: 40 MILLIGRAM/KILOGRAM, ONCE DAILY (QD)
     Route: 048
  2. LEVETIRACETAM [Suspect]
     Active Substance: LEVETIRACETAM
     Dosage: DOSE REDUCED
  3. LEVETIRACETAM [Suspect]
     Active Substance: LEVETIRACETAM
     Dosage: RESUMED
  4. CLOBAZAM [Suspect]
     Active Substance: CLOBAZAM
     Indication: Seizure
     Dosage: 0.3 MILLIGRAM/KILOGRAM, ONCE DAILY (QD)
  5. CLOBAZAM [Suspect]
     Active Substance: CLOBAZAM
     Dosage: DOSE REDUCED
  6. CLOBAZAM [Suspect]
     Active Substance: CLOBAZAM
     Dosage: RESUMED
  7. TOPIRAMATE [Suspect]
     Active Substance: TOPIRAMATE
     Indication: Seizure
     Dosage: 8 MILLIGRAM/KILOGRAM, ONCE DAILY (QD)
  8. TOPIRAMATE [Suspect]
     Active Substance: TOPIRAMATE
     Dosage: DOSE REDUCED
  9. TOPIRAMATE [Suspect]
     Active Substance: TOPIRAMATE
     Dosage: RESUMED
  10. PHENOBARBITAL [Suspect]
     Active Substance: PHENOBARBITAL
     Indication: Seizure
     Dosage: UNK
  11. PHENOBARBITAL [Suspect]
     Active Substance: PHENOBARBITAL
     Dosage: DOSE INCREASE
  12. LAMOTRIGINE [Suspect]
     Active Substance: LAMOTRIGINE
     Indication: Myoclonus
     Dosage: UNK
  13. LAMOTRIGINE [Suspect]
     Active Substance: LAMOTRIGINE
     Indication: Petit mal epilepsy
     Dosage: DOSE INCREASE
  14. LAMOTRIGINE [Suspect]
     Active Substance: LAMOTRIGINE
     Indication: Seizure
  15. MIDAZOLAM HYDROCHLORIDE [Suspect]
     Active Substance: MIDAZOLAM HYDROCHLORIDE
     Indication: Petit mal epilepsy
     Dosage: UNK
  16. MIDAZOLAM HYDROCHLORIDE [Suspect]
     Active Substance: MIDAZOLAM HYDROCHLORIDE
     Indication: Tonic convulsion
     Dosage: REDUCED DOSE

REACTIONS (5)
  - Seizure [Recovering/Resolving]
  - Pneumonia aspiration [Unknown]
  - Epilepsy [Recovering/Resolving]
  - Multiple-drug resistance [Unknown]
  - Off label use [Unknown]
